FAERS Safety Report 12114183 (Version 1)
Quarter: 2016Q1

REPORT INFORMATION
  Report Type: Spontaneous
  Country: US (occurrence: US)
  Receive Date: 20160225
  Receipt Date: 20160225
  Transmission Date: 20160526
  Serious: No
  Sender: FDA-Public Use
  Company Number: US-LANTHEUS-LMI-2015-00122

PATIENT
  Age: 57 Year
  Sex: Female
  Weight: 106 kg

DRUGS (13)
  1. ALBUTEROL. [Concomitant]
     Active Substance: ALBUTEROL
  2. METFORMIN [Concomitant]
     Active Substance: METFORMIN HYDROCHLORIDE
  3. GLUCOSAMINE [Concomitant]
     Active Substance: GLUCOSAMINE
  4. ATENOLOL. [Concomitant]
     Active Substance: ATENOLOL
  5. CLOBETASOL [Concomitant]
     Active Substance: CLOBETASOL
  6. OMEGA 3 FISH OIL [Concomitant]
     Active Substance: FISH OIL\OMEGA-3 FATTY ACIDS
  7. SINGULAIR [Concomitant]
     Active Substance: MONTELUKAST SODIUM
  8. FLORASTOR [Concomitant]
     Active Substance: SACCHAROMYCES CEREVISIAE
  9. ASMANEX [Concomitant]
     Active Substance: MOMETASONE FUROATE
  10. CALCIUM [Concomitant]
     Active Substance: CALCIUM
  11. DEFINITY [Suspect]
     Active Substance: PERFLUTREN
     Indication: STRESS ECHOCARDIOGRAM
     Dosage: 1.3 ML DEFINITY DILUTED IN 8.7 ML UNSPECIFIED DILUENT
     Route: 040
     Dates: start: 20150311, end: 20150311
  12. LISINOPRIL. [Concomitant]
     Active Substance: LISINOPRIL
  13. MULTI VITAMIN [Concomitant]
     Active Substance: VITAMINS

REACTIONS (2)
  - Panic reaction [Recovered/Resolved]
  - Paraesthesia [Recovered/Resolved]

NARRATIVE: CASE EVENT DATE: 20150311
